FAERS Safety Report 18446579 (Version 1)
Quarter: 2020Q4

REPORT INFORMATION
  Report Type: Spontaneous
  Country: US (occurrence: US)
  Receive Date: 20201030
  Receipt Date: 20201030
  Transmission Date: 20210114
  Serious: No
  Sender: FDA-Public Use
  Company Number: US-NOVOPROD-707996

PATIENT
  Age: 59 Year
  Sex: Female

DRUGS (1)
  1. TRESIBA [Suspect]
     Active Substance: INSULIN DEGLUDEC
     Indication: TYPE 2 DIABETES MELLITUS
     Dosage: UNK
     Route: 058

REACTIONS (16)
  - Dyspnoea [Unknown]
  - Nausea [Not Recovered/Not Resolved]
  - Dry skin [Unknown]
  - Dizziness [Unknown]
  - Lip dry [Unknown]
  - Fatigue [Unknown]
  - Nasal congestion [Unknown]
  - Dehydration [Unknown]
  - Inflammation [Unknown]
  - Pain [Unknown]
  - Back pain [Unknown]
  - Muscle spasms [Unknown]
  - Blood glucose increased [Unknown]
  - Stress [Unknown]
  - Palpitations [Unknown]
  - Arthralgia [Unknown]
